FAERS Safety Report 4347508-5 (Version None)
Quarter: 2004Q2

REPORT INFORMATION
  Report Type: 
  Country: None (occurrence: None)
  Receive Date: 20040421
  Receipt Date: 20040308
  Transmission Date: 20050107
  Serious: Yes (Other)
  Sender: FDA-Public Use
  Company Number: 2004017094

PATIENT

DRUGS (1)
  1. RELPAX [Suspect]
     Indication: ILL-DEFINED DISORDER

REACTIONS (2)
  - NAUSEA [None]
  - VOMITING [None]
